FAERS Safety Report 5023833-X (Version None)
Quarter: 2006Q2

REPORT INFORMATION
  Report Type: 
  Country: None (occurrence: None)
  Receive Date: 20060606
  Receipt Date: 20060525
  Transmission Date: 20061013
  Serious: Yes (Hospitalization, Other)
  Sender: FDA-Public Use
  Company Number: HQWYE550020SEP05

PATIENT
  Age: 67 Year
  Sex: Male
  Weight: 105.8 kg

DRUGS (23)
  1. RAPAMUNE [Suspect]
     Indication: PROPHYLAXIS AGAINST TRANSPLANT REJECTION
     Dosage: SEE IMAGE
     Route: 048
     Dates: start: 20050211, end: 20050901
  2. RAPAMUNE [Suspect]
     Indication: PROPHYLAXIS AGAINST TRANSPLANT REJECTION
     Dosage: SEE IMAGE
     Route: 048
     Dates: start: 20050901, end: 20050901
  3. RAPAMUNE [Suspect]
     Indication: PROPHYLAXIS AGAINST TRANSPLANT REJECTION
     Dosage: SEE IMAGE
     Route: 048
     Dates: start: 20050901
  4. ZENAPAX [Concomitant]
  5. PROGRAF [Concomitant]
  6. PREDNISONE TAB [Concomitant]
  7. PREVACID [Concomitant]
  8. MULTIVITAMINS, PLAIN (MULTIVITAMINS, PLAIN) [Concomitant]
  9. LIPITOR [Concomitant]
  10. NORVASC [Concomitant]
  11. CLONIDINE [Concomitant]
  12. CARDURA [Concomitant]
  13. AVODART [Concomitant]
  14. BACTRIM [Concomitant]
  15. CALCIUM CARBONATE (CALCIUM CARBONATE) [Concomitant]
  16. FISH OIL, HYDROGENATED (FISH OIL, HYDROGENATED) [Concomitant]
  17. ASPIRIN [Concomitant]
  18. AMARYL [Concomitant]
  19. FERROUS SULFATE TAB [Concomitant]
  20. ARANESP [Concomitant]
  21. LANTUS [Concomitant]
  22. NOVOLOG [Concomitant]
  23. LASIX [Concomitant]

REACTIONS (7)
  - CATHETER SITE ERYTHEMA [None]
  - IMMUNOSUPPRESSANT DRUG LEVEL INCREASED [None]
  - KIDNEY TRANSPLANT REJECTION [None]
  - MEDICAL DEVICE SITE REACTION [None]
  - PYREXIA [None]
  - SURGERY [None]
  - VIRUS URINE TEST POSITIVE [None]
